FAERS Safety Report 21669051 (Version 1)
Quarter: 2022Q4

REPORT INFORMATION
  Report Type: Spontaneous
  Country: JP (occurrence: JP)
  Receive Date: 20221201
  Receipt Date: 20221201
  Transmission Date: 20230113
  Serious: Yes (Death)
  Sender: FDA-Public Use
  Company Number: JP-MSD-2211JPN003619J

PATIENT
  Age: 89 Year
  Sex: Male

DRUGS (5)
  1. LAGEVRIO [Suspect]
     Active Substance: MOLNUPIRAVIR
     Indication: COVID-19 treatment
     Dosage: 800 MILLIGRAM, BID
     Route: 048
     Dates: start: 20220826, end: 20220827
  2. FLUTICASONE PROPIONATE\SALMETEROL XINAFOATE [Concomitant]
     Active Substance: FLUTICASONE PROPIONATE\SALMETEROL XINAFOATE
     Dosage: UNK
     Route: 065
     Dates: start: 20220812, end: 20220827
  3. TULOBUTEROL [Concomitant]
     Active Substance: TULOBUTEROL
     Dosage: 2 MILLIGRAM, QD
     Route: 061
     Dates: start: 20220701, end: 20220827
  4. SENNOSIDES A AND B [Concomitant]
     Active Substance: SENNOSIDES A AND B
     Dosage: 36 MILLIGRAM, QD
     Route: 048
     Dates: start: 20220701, end: 20220827
  5. DEXTROSE\POTASSIUM CHLORIDE\SODIUM CHLORIDE\SODIUM LACTATE [Concomitant]
     Active Substance: DEXTROSE\POTASSIUM CHLORIDE\SODIUM CHLORIDE\SODIUM LACTATE
     Dosage: 500 MILLILITER, QD
     Route: 065
     Dates: start: 20220826, end: 20220827

REACTIONS (1)
  - COVID-19 [Fatal]

NARRATIVE: CASE EVENT DATE: 20220828
